FAERS Safety Report 25474359 (Version 1)
Quarter: 2025Q2

REPORT INFORMATION
  Report Type: Report from Study
  Country: GT (occurrence: GT)
  Receive Date: 20250624
  Receipt Date: 20250624
  Transmission Date: 20250716
  Serious: Yes (Hospitalization)
  Sender: NOVARTIS
  Company Number: GT-002147023-NVSC2025GT100349

PATIENT
  Age: 77 Year
  Sex: Male

DRUGS (3)
  1. SACUBITRIL\VALSARTAN [Suspect]
     Active Substance: SACUBITRIL\VALSARTAN
     Indication: Cardiac failure
     Route: 048
  2. SACUBITRIL\VALSARTAN [Suspect]
     Active Substance: SACUBITRIL\VALSARTAN
     Route: 048
     Dates: start: 202502, end: 202504
  3. SACUBITRIL\VALSARTAN [Suspect]
     Active Substance: SACUBITRIL\VALSARTAN
     Route: 048
     Dates: start: 202505

REACTIONS (3)
  - Cardiac disorder [Recovering/Resolving]
  - Abdominal discomfort [Recovering/Resolving]
  - Cardiorenal syndrome [Recovering/Resolving]

NARRATIVE: CASE EVENT DATE: 20241001
